FAERS Safety Report 10083312 (Version 1)
Quarter: 2014Q2

REPORT INFORMATION
  Report Type: Spontaneous
  Country: US (occurrence: US)
  Receive Date: 20140417
  Receipt Date: 20140417
  Transmission Date: 20141212
  Serious: No
  Sender: FDA-Public Use
  Company Number: US-009507513-1404USA005747

PATIENT
  Age: 53 Year
  Sex: Female

DRUGS (8)
  1. PEGINTRON [Suspect]
     Indication: HEPATITIS C
     Dosage: 0.5 ML, ONCE A WEEK
     Route: 058
     Dates: start: 20140310
  2. REBETOL [Suspect]
     Indication: HEPATITIS C
     Dosage: 600MG.A.M.400MG.P.M., DAILY
     Route: 048
     Dates: start: 20140310
  3. SOVALDI [Concomitant]
     Dosage: 1 DF (400 MG), DAILY
  4. CITALOPRAM [Concomitant]
     Dosage: 1 TABLET (40 MG) DAILY
     Route: 048
  5. TRAMADOL HYDROCHLORIDE [Concomitant]
     Dosage: I TO 2 EVERY 8 HOURS PM
  6. HYDROCODONE [Concomitant]
     Indication: PAIN
     Dosage: I TO 2 AS NEEDED
  7. TYLENOL [Concomitant]
     Dosage: 2 TABLETS TWICE DAILY IF NEEDED (UNSPECIFIED BUT NOT TO EXCEED 2000 MG QD)
     Route: 048
  8. ALPRAZOLAM [Concomitant]
     Dosage: 1 TABLET TID PRN
     Route: 048

REACTIONS (11)
  - Crying [Unknown]
  - Mental status changes [Unknown]
  - Dry eye [Unknown]
  - Nasal dryness [Unknown]
  - Dry mouth [Unknown]
  - Dyspnoea [Unknown]
  - Fatigue [Unknown]
  - Headache [Unknown]
  - Rash [Recovered/Resolved]
  - Leukopenia [Unknown]
  - Somnolence [Unknown]
